FAERS Safety Report 24527219 (Version 1)
Quarter: 2024Q4

REPORT INFORMATION
  Report Type: Report from Study
  Country: US (occurrence: US)
  Receive Date: 20241021
  Receipt Date: 20241021
  Transmission Date: 20250115
  Serious: No
  Sender: ROCHE
  Company Number: US-ROCHE-2893428

PATIENT
  Age: 83 Year
  Sex: Female

DRUGS (21)
  1. COTELLIC [Suspect]
     Active Substance: COBIMETINIB
     Indication: Toxicity to various agents
     Dosage: TAKE 1 TABLET BY MOUTH EVERY DAY FOR 21 DAYS THE HOLD FOR 7 DAYS.
     Route: 048
     Dates: start: 20210603
  2. COTELLIC [Suspect]
     Active Substance: COBIMETINIB
     Indication: Histiocytosis
     Route: 048
  3. COTELLIC [Suspect]
     Active Substance: COBIMETINIB
     Indication: Laryngeal disorder
     Route: 048
  4. COTELLIC [Suspect]
     Active Substance: COBIMETINIB
     Indication: Underdose
     Route: 048
  5. COTELLIC [Suspect]
     Active Substance: COBIMETINIB
     Indication: Neoplasm malignant
     Route: 048
  6. RITUXAN [Suspect]
     Active Substance: RITUXIMAB
     Indication: Histiocytosis
     Dosage: DATE OF TREATMENT-20/NOV/2019
     Route: 042
     Dates: start: 20180116
  7. RITUXAN [Suspect]
     Active Substance: RITUXIMAB
     Indication: Laryngeal disorder
     Route: 042
  8. RITUXAN [Suspect]
     Active Substance: RITUXIMAB
     Indication: Underdose
     Route: 042
  9. RITUXAN [Suspect]
     Active Substance: RITUXIMAB
     Indication: Toxicity to various agents
  10. ASCORBIC ACID [Concomitant]
     Active Substance: ASCORBIC ACID
     Route: 048
  11. HYDROCORTISONE [Concomitant]
     Active Substance: HYDROCORTISONE
     Route: 061
  12. MELATONIN [Concomitant]
     Active Substance: MELATONIN
     Route: 048
  13. PAROXETINE [Concomitant]
     Active Substance: PAROXETINE
     Route: 048
  14. TRIAMCINOLONE [Concomitant]
     Active Substance: TRIAMCINOLONE
     Route: 061
     Dates: start: 20210616
  15. ACETAMINOPHEN [Concomitant]
     Active Substance: ACETAMINOPHEN
     Dosage: FREQUENCY TEXT:AS NEEDED
     Route: 048
  16. ALBUTEROL [Concomitant]
     Active Substance: ALBUTEROL
     Dosage: 0.5 ML/INHALATION
  17. BENZONATATE [Concomitant]
     Active Substance: BENZONATATE
     Route: 048
     Dates: start: 20210616
  18. CLARITIN [Concomitant]
     Active Substance: LORATADINE
     Route: 048
     Dates: start: 20210616
  19. DIPHENHYDRAMINE [Concomitant]
     Active Substance: DIPHENHYDRAMINE
     Route: 048
  20. TRAZODONE [Concomitant]
     Active Substance: TRAZODONE HYDROCHLORIDE
     Route: 048
  21. RITUXAN HYCELA [Concomitant]
     Active Substance: HYALURONIDASE (HUMAN RECOMBINANT)\RITUXIMAB
     Dosage: DATE OF TREATMENT- 31/JAN/2019, 07/FEB/2019
     Route: 058
     Dates: start: 20190124

REACTIONS (12)
  - Rash [Unknown]
  - Rosai-Dorfman syndrome [Unknown]
  - Off label use [Unknown]
  - Off label use [Unknown]
  - Vision blurred [Unknown]
  - Alopecia [Unknown]
  - Trichorrhexis [Unknown]
  - Adverse drug reaction [Unknown]
  - Visual impairment [Unknown]
  - Cataract [Unknown]
  - Pruritus [Unknown]
  - Flushing [Unknown]

NARRATIVE: CASE EVENT DATE: 20180116
